FAERS Safety Report 4418296-9 (Version None)
Quarter: 2004Q3

REPORT INFORMATION
  Report Type: 
  Country: None (occurrence: None)
  Receive Date: 20040809
  Receipt Date: 20040203
  Transmission Date: 20050211
  Serious: No
  Sender: FDA-Public Use
  Company Number: US-GLAXOSMITHKLINE-A0496311A

PATIENT
  Age: 80 Year
  Sex: Female

DRUGS (4)
  1. PAXIL CR [Suspect]
     Dosage: 25MG PER DAY
     Route: 048
     Dates: start: 20031105, end: 20031223
  2. PREMARIN [Concomitant]
  3. UNKNOWN MEDICATION [Concomitant]
  4. ZYRTEC [Concomitant]

REACTIONS (3)
  - DYSGEUSIA [None]
  - HOT FLUSH [None]
  - SOMNOLENCE [None]
